FAERS Safety Report 10167787 (Version 1)
Quarter: 2014Q2

REPORT INFORMATION
  Report Type: Report from Study
  Country: US (occurrence: US)
  Receive Date: 20140512
  Receipt Date: 20140512
  Transmission Date: 20141212
  Serious: Yes (Hospitalization)
  Sender: FDA-Public Use
  Company Number: PHEH2014US009454

PATIENT
  Age: 33 Year
  Sex: Female
  Weight: 56.69 kg

DRUGS (1)
  1. TOBI PODHALER [Suspect]
     Indication: CYSTIC FIBROSIS
     Dosage: 112 MG, BID
     Route: 055
     Dates: start: 201306, end: 201306

REACTIONS (2)
  - Nonspecific reaction [Recovered/Resolved]
  - Bronchospasm [Recovered/Resolved]
